FAERS Safety Report 7494421-0 (Version None)
Quarter: 2011Q2

REPORT INFORMATION
  Report Type: 
  Country: None (occurrence: None)
  Receive Date: 20110520
  Receipt Date: 20110506
  Transmission Date: 20111010
  Serious: Yes (Hospitalization)
  Sender: FDA-Public Use
  Company Number: US-WATSON-2011-06216

PATIENT
  Age: 65 Year
  Sex: Female
  Weight: 55.329 kg

DRUGS (6)
  1. FENTANYL-50 [Suspect]
     Dosage: UNK
     Route: 062
     Dates: start: 20040101
  2. FENTANYL-75 [Suspect]
     Dosage: UNK
     Route: 062
  3. FENTANYL-75 [Suspect]
     Indication: BACK PAIN
     Dosage: 1 PATCH, Q 2-3 DAYS
     Route: 062
     Dates: start: 20110505
  4. FENTANYL [Suspect]
     Dosage: UNK
     Route: 062
     Dates: start: 20040101
  5. FENTANYL [Suspect]
     Indication: BACK PAIN
     Dosage: UNK
     Route: 062
  6. FENTANYL-50 [Suspect]
     Indication: BACK PAIN
     Dosage: UNK
     Route: 062

REACTIONS (6)
  - DRUG DEPENDENCE [None]
  - SURGERY [None]
  - DRUG INEFFECTIVE [None]
  - APPLICATION SITE RASH [None]
  - PNEUMONIA [None]
  - APPLICATION SITE BLEEDING [None]
